FAERS Safety Report 6906565-X (Version None)
Quarter: 2010Q3

REPORT INFORMATION
  Report Type: 
  Country: None (occurrence: None)
  Receive Date: 20100804
  Receipt Date: 20100716
  Transmission Date: 20110219
  Serious: Yes (Life-Threatening, Hospitalization)
  Sender: FDA-Public Use
  Company Number: US-BAYER-201019456NA

PATIENT
  Age: 38 Year
  Sex: Female

DRUGS (49)
  1. YAZ [Suspect]
     Indication: ORAL CONTRACEPTION
     Route: 048
     Dates: start: 20071101, end: 20071201
  2. YAZ [Suspect]
     Route: 048
     Dates: start: 20080501, end: 20080701
  3. PENICILLIN [Concomitant]
  4. CIPRO [Concomitant]
  5. CEPHALEXIN [Concomitant]
     Dates: start: 20080124
  6. DOXYCYCLINE [Concomitant]
  7. SULFA [Concomitant]
  8. FLUCONAZOLE [Concomitant]
     Dates: start: 20040101
  9. FLUCONAZOLE [Concomitant]
     Dates: start: 20100101
  10. FLUCONAZOLE [Concomitant]
     Dates: start: 20050101
  11. FLUCONAZOLE [Concomitant]
     Dates: start: 20060101
  12. FLUCONAZOLE [Concomitant]
     Dates: start: 20080101
  13. FLUCONAZOLE [Concomitant]
     Dates: start: 20090101
  14. GABAPENTIN [Concomitant]
     Dates: start: 20080325
  15. DIVALPROEX DR [Concomitant]
     Dates: start: 20100217
  16. CLONAZEPAM [Concomitant]
     Dates: start: 20090619, end: 20091130
  17. CLONAZEPAM [Concomitant]
     Dates: start: 20100102
  18. CLONAZEPAM [Concomitant]
     Dates: start: 20100207
  19. IMITREX [Concomitant]
     Indication: MIGRAINE
     Dates: start: 20091104
  20. PROAIR HFA [Concomitant]
     Indication: ASTHMA
     Dates: start: 20090609
  21. ETODOLAC [Concomitant]
     Dates: start: 20080515
  22. ETODOLAC [Concomitant]
     Dates: start: 20081001
  23. NAPROXEN [Concomitant]
     Dates: start: 20080515
  24. NAPROXEN [Concomitant]
     Dates: start: 20081001
  25. NAPROXEN [Concomitant]
  26. INDOMETHACIN [Concomitant]
  27. CELEBREX [Concomitant]
     Dates: start: 20080220
  28. ORPHENADRINE CITRATE [Concomitant]
     Indication: MUSCLE RELAXANT THERAPY
     Dates: start: 20080101
  29. BUPROPION HCL [Concomitant]
     Indication: DEPRESSION
  30. LORATADINE [Concomitant]
     Indication: MULTIPLE ALLERGIES
  31. AMITRIPTYLINE HYDROCHLORIDE [Concomitant]
     Indication: DEPRESSION
     Dates: start: 20040201
  32. ELMIRON [Concomitant]
     Indication: BLADDER PAIN
  33. OXYTROL [Concomitant]
     Indication: BLADDER PAIN
  34. MECLIZINE [Concomitant]
     Indication: VERTIGO
     Dates: start: 20080101
  35. AMPHETAMINE AND DEXTROAMPHETAMINE SALTS [Concomitant]
     Indication: NARCOLEPSY
     Dates: start: 20070101, end: 20100101
  36. TRAMADOL HYDROCHLORIDE [Concomitant]
     Indication: PAIN
     Dates: start: 20050101, end: 20090101
  37. TRAZODONE [Concomitant]
     Indication: DEPRESSION
     Dates: start: 20060101
  38. TRAZODONE [Concomitant]
     Dates: start: 20090101, end: 20100101
  39. FLUOXETINE [Concomitant]
     Indication: DEPRESSION
     Dates: start: 20050101
  40. HYDROCODONE BITARTRATE AND ACETAMINOPHEN [Concomitant]
     Indication: PAIN
  41. OXYCODONE HCL AND ACETAMINOPHEN [Concomitant]
     Indication: PAIN
     Dates: start: 20080101
  42. LEXAPRO [Concomitant]
     Indication: DEPRESSION
     Dates: start: 20080801, end: 20090301
  43. LORAZEPAM [Concomitant]
     Indication: ANXIETY
  44. DURAGESIC-100 [Concomitant]
     Indication: PAIN
     Route: 062
  45. SEROQUEL XR [Concomitant]
     Indication: BIPOLAR DISORDER
  46. LYRICA [Concomitant]
     Indication: NEURALGIA
     Dates: start: 20090101
  47. LYRICA [Concomitant]
     Dates: start: 20080101
  48. FENTANYL CITRATE [Concomitant]
     Indication: PAIN
     Route: 062
  49. TIZANIDINE HCL [Concomitant]
     Indication: MUSCLE RELAXANT THERAPY
     Dates: start: 20080501

REACTIONS (5)
  - CHEST PAIN [None]
  - DEEP VEIN THROMBOSIS [None]
  - DYSPNOEA [None]
  - PAIN IN EXTREMITY [None]
  - PULMONARY EMBOLISM [None]
